FAERS Safety Report 22366568 (Version 1)
Quarter: 2023Q2

REPORT INFORMATION
  Report Type: Spontaneous
  Country: US (occurrence: None)
  Receive Date: 20230524
  Receipt Date: 20230524
  Transmission Date: 20230721
  Serious: Yes (Hospitalization)
  Sender: FDA-Public Use
  Company Number: None

PATIENT
  Age: 30 Year
  Sex: Female
  Weight: 70.2 kg

DRUGS (1)
  1. PROHANCE [Suspect]
     Active Substance: GADOTERIDOL
     Route: 042

REACTIONS (4)
  - Urticaria [None]
  - Cough [None]
  - Throat tightness [None]
  - Contrast media reaction [None]

NARRATIVE: CASE EVENT DATE: 20230524
